FAERS Safety Report 23823659 (Version 2)
Quarter: 2024Q2

REPORT INFORMATION
  Report Type: Spontaneous
  Country: US (occurrence: US)
  Receive Date: 20240507
  Receipt Date: 20240512
  Transmission Date: 20240716
  Serious: No
  Sender: FDA-Public Use
  Company Number: US-ABBVIE-5746957

PATIENT

DRUGS (1)
  1. LINZESS [Suspect]
     Active Substance: LINACLOTIDE
     Indication: Constipation
     Dosage: 290 MICROGRAM
     Route: 048
     Dates: start: 20240503, end: 20240503

REACTIONS (1)
  - Unevaluable event [Unknown]
